FAERS Safety Report 4876775-4 (Version None)
Quarter: 2005Q4

REPORT INFORMATION
  Report Type: 
  Country: None (occurrence: None)
  Receive Date: 20051206
  Receipt Date: 20051003
  Transmission Date: 20060501
  Serious: No
  Sender: FDA-Public Use
  Company Number: USA050291542

PATIENT
  Age: 28 Year
  Sex: Male

DRUGS (3)
  1. ZYPREXA [Suspect]
     Dosage: 30 MG/1 DAY
  2. CYMBALTA [Suspect]
     Dates: start: 20041001
  3. SEROQUEL [Concomitant]

REACTIONS (4)
  - BLOOD PROLACTIN INCREASED [None]
  - BREAST TENDERNESS [None]
  - HYPERTROPHY BREAST [None]
  - PRESCRIBED OVERDOSE [None]
